FAERS Safety Report 5078246-1 (Version None)
Quarter: 2006Q3

REPORT INFORMATION
  Report Type: 
  Country: None (occurrence: None)
  Receive Date: 20060811
  Receipt Date: 20060803
  Transmission Date: 20061208
  Serious: Yes (Hospitalization)
  Sender: FDA-Public Use
  Company Number: JP-ROCHE-457784

PATIENT
  Age: 83 Year
  Sex: Female
  Weight: 50.7 kg

DRUGS (10)
  1. TORSEMIDE [Suspect]
     Route: 048
     Dates: end: 20060522
  2. HORIZON [Suspect]
     Indication: OSTEOPOROSIS
     Route: 065
     Dates: end: 20060522
  3. NEUROVITAN [Suspect]
     Indication: DRUG USE FOR UNKNOWN INDICATION
     Route: 048
     Dates: end: 20060522
  4. ACTONEL [Suspect]
     Indication: DRUG USE FOR UNKNOWN INDICATION
     Route: 048
     Dates: end: 20060522
  5. PLATIBIT [Suspect]
     Indication: DRUG USE FOR UNKNOWN INDICATION
     Route: 048
     Dates: end: 20060522
  6. GLAKAY [Suspect]
     Indication: DRUG USE FOR UNKNOWN INDICATION
     Route: 048
     Dates: end: 20060522
  7. PRORENAL [Suspect]
     Indication: DRUG USE FOR UNKNOWN INDICATION
     Route: 048
     Dates: end: 20060522
  8. DICLOFENAC SODIUM [Suspect]
     Indication: DRUG USE FOR UNKNOWN INDICATION
     Route: 054
     Dates: end: 20060522
  9. FASTIC [Suspect]
     Indication: DRUG USE FOR UNKNOWN INDICATION
     Route: 048
     Dates: end: 20060522
  10. DEPAS [Suspect]
     Indication: DRUG USE FOR UNKNOWN INDICATION
     Route: 048
     Dates: end: 20060522

REACTIONS (4)
  - ANOREXIA [None]
  - GASTRITIS [None]
  - JAUNDICE [None]
  - LIVER DISORDER [None]
